FAERS Safety Report 10240191 (Version 1)
Quarter: 2014Q2

REPORT INFORMATION
  Report Type: Spontaneous
  Country: US (occurrence: US)
  Receive Date: 20140617
  Receipt Date: 20140617
  Transmission Date: 20141212
  Serious: Yes (Other)
  Sender: FDA-Public Use
  Company Number: US-AMGEN-USASP2014043740

PATIENT
  Sex: Female

DRUGS (10)
  1. PROLIA [Suspect]
     Indication: OSTEOPOROSIS POSTMENOPAUSAL
     Dosage: UNK
     Route: 065
     Dates: start: 2013
  2. COREG [Concomitant]
  3. INSULIN [Concomitant]
  4. ISOSORBIDE [Concomitant]
  5. SYNTHROID [Concomitant]
  6. PRAVASTATIN [Concomitant]
  7. PREVACID [Concomitant]
  8. CYMBALTA [Concomitant]
  9. BENADRYL                           /00000402/ [Concomitant]
     Dosage: AT NIGHT
  10. DARVON                             /00018802/ [Concomitant]

REACTIONS (3)
  - Kidney infection [Recovered/Resolved]
  - Spinal fracture [Unknown]
  - Drug ineffective [Unknown]
